FAERS Safety Report 10313979 (Version 1)
Quarter: 2014Q3

REPORT INFORMATION
  Report Type: Spontaneous
  Country: US (occurrence: US)
  Receive Date: 20140718
  Receipt Date: 20140718
  Transmission Date: 20150326
  Serious: Yes (Other)
  Sender: FDA-Public Use
  Company Number: US-009507513-1407USA006705

PATIENT
  Age: 53 Year
  Sex: Male
  Weight: 114.2 kg

DRUGS (5)
  1. REBETOL [Suspect]
     Active Substance: RIBAVIRIN
     Dosage: 800MG/DAY DIVIDED
     Route: 048
     Dates: start: 20120615, end: 20120712
  2. VICTRELIS [Suspect]
     Active Substance: BOCEPREVIR
     Indication: HEPATITIS C
     Dosage: TAKE FOUR CAPSULES BY MOUTH THREE TIMES A DAY
     Route: 048
     Dates: start: 20120518, end: 20121104
  3. REBETOL [Suspect]
     Active Substance: RIBAVIRIN
     Indication: HEPATITIS C
     Dosage: TAKE ONE CAPSULE BY MOUTH EVERY MORNING AND TAKE TWO CAPSULES EACH EVENING (1200 MG/DAY DIVIDED)
     Route: 048
     Dates: start: 20120419, end: 20120614
  4. PEGINTERFERON ALFA-2A [Suspect]
     Active Substance: PEGINTERFERON ALFA-2A
     Indication: HEPATITIS C
  5. REBETOL [Suspect]
     Active Substance: RIBAVIRIN
     Dosage: 600MG/DAY DIVIDED
     Route: 048
     Dates: start: 20120713, end: 20121104

REACTIONS (1)
  - Anaemia [Recovered/Resolved]

NARRATIVE: CASE EVENT DATE: 20120928
